FAERS Safety Report 5770614-5 (Version None)
Quarter: 2008Q2

REPORT INFORMATION
  Report Type: 
  Country: None (occurrence: None)
  Receive Date: 20080613
  Receipt Date: 20080502
  Transmission Date: 20081010
  Serious: No
  Sender: FDA-Public Use
  Company Number: US-ABBOTT-08P-163-0450224-00

PATIENT
  Sex: Female
  Weight: 52.21 kg

DRUGS (8)
  1. HUMIRA [Suspect]
     Indication: CROHN'S DISEASE
     Route: 058
     Dates: start: 20070401, end: 20070401
  2. HUMIRA [Suspect]
     Route: 058
     Dates: end: 20080401
  3. HUMIRA [Suspect]
     Route: 058
     Dates: start: 20080501, end: 20080501
  4. HUMIRA [Suspect]
     Route: 058
  5. MERCAPTOPURINE [Concomitant]
     Indication: CROHN'S DISEASE
     Dosage: 25 MG AND 50MG ALTERNATE EVERY OTHER DAY
     Route: 048
     Dates: start: 20031001
  6. COLAVAL [Concomitant]
     Indication: CROHN'S DISEASE
     Route: 048
     Dates: start: 20050101
  7. MULTI-VITAMIN [Concomitant]
     Indication: VITAMIN SUPPLEMENTATION
     Route: 048
     Dates: start: 20030101
  8. CALCIUM [Concomitant]
     Indication: MINERAL SUPPLEMENTATION
     Route: 048
     Dates: start: 20030101

REACTIONS (2)
  - ACCIDENTAL EXPOSURE [None]
  - CROHN'S DISEASE [None]
